FAERS Safety Report 6391216-6 (Version None)
Quarter: 2009Q4

REPORT INFORMATION
  Report Type: 
  Country: None (occurrence: None)
  Receive Date: 20091007
  Receipt Date: 20090923
  Transmission Date: 20100525
  Serious: Yes (Death)
  Sender: FDA-Public Use
  Company Number: US-PFIZER INC-2009251534

PATIENT
  Sex: Male
  Weight: 104.31 kg

DRUGS (3)
  1. CHANTIX [Suspect]
     Indication: TOBACCO USER
     Dosage: UNK
     Route: 048
     Dates: start: 20090416, end: 20090501
  2. CHANTIX [Suspect]
     Indication: SMOKING CESSATION THERAPY
  3. GABAPENTIN [Suspect]
     Indication: PAIN
     Dosage: UNK

REACTIONS (1)
  - COMPLETED SUICIDE [None]
